FAERS Safety Report 19798801 (Version 2)
Quarter: 2022Q2

REPORT INFORMATION
  Report Type: Spontaneous
  Country: US (occurrence: US)
  Receive Date: 20210907
  Receipt Date: 20220426
  Transmission Date: 20220720
  Serious: No
  Sender: FDA-Public Use
  Company Number: US-PFIZER INC-2021753685

PATIENT
  Age: 59 Year
  Sex: Female

DRUGS (1)
  1. IBRANCE [Suspect]
     Active Substance: PALBOCICLIB
     Indication: Breast cancer female
     Dosage: 125 MG, CYCLIC (21D OF EACH 28D CYCLE)
     Route: 048
     Dates: start: 20210402

REACTIONS (7)
  - Product dose omission issue [Unknown]
  - Drug ineffective [Unknown]
  - Decreased appetite [Unknown]
  - Dry skin [Unknown]
  - Fatigue [Unknown]
  - Anaemia [Unknown]
  - Oral pain [Unknown]

NARRATIVE: CASE EVENT DATE: 20210101
